FAERS Safety Report 12619716 (Version 1)
Quarter: 2016Q3

REPORT INFORMATION
  Report Type: Spontaneous
  Country: FR (occurrence: FR)
  Receive Date: 20160803
  Receipt Date: 20160803
  Transmission Date: 20161109
  Serious: Yes (Hospitalization)
  Sender: FDA-Public Use
  Company Number: FR-NORTHSTAR HEALTHCARE HOLDINGS-FR-2016NSR000420

PATIENT
  Age: 50 Year
  Sex: Female

DRUGS (3)
  1. TRAMADOL HYDROCHLORIDE. [Suspect]
     Active Substance: TRAMADOL HYDROCHLORIDE
     Indication: PRODUCT USED FOR UNKNOWN INDICATION
     Dosage: 18 G, SINGLE [NOT THE PRESCRIBED AMOUNT]
     Route: 048
  2. ALCOHOL. [Suspect]
     Active Substance: ALCOHOL
     Indication: PRODUCT USED FOR UNKNOWN INDICATION
     Dosage: 1 L, SINGLE ONE BOTTLE [NOT THE PRESCRIBED AMOUNT]
     Route: 048
  3. ALPRAZOLAM. [Suspect]
     Active Substance: ALPRAZOLAM
     Indication: PRODUCT USED FOR UNKNOWN INDICATION
     Dosage: 15 MG, SINGLE [NOT THE PRESCRIBED AMOUNT]
     Route: 048

REACTIONS (23)
  - Lactic acidosis [Recovering/Resolving]
  - Cardiovascular insufficiency [Recovering/Resolving]
  - Somnolence [Recovering/Resolving]
  - Respiratory arrest [Recovering/Resolving]
  - Cyanosis [Recovering/Resolving]
  - Acute hepatic failure [Recovering/Resolving]
  - Neuromyopathy [Recovering/Resolving]
  - Toxicity to various agents [Recovering/Resolving]
  - Mydriasis [Recovering/Resolving]
  - Acute kidney injury [Recovering/Resolving]
  - Intentional overdose [Recovering/Resolving]
  - Alcohol use [Recovering/Resolving]
  - Respiratory failure [Recovering/Resolving]
  - Ventricular tachycardia [Recovering/Resolving]
  - Ventricular arrhythmia [Recovering/Resolving]
  - Electrocardiogram QRS complex prolonged [Recovering/Resolving]
  - Atrioventricular block [Recovering/Resolving]
  - Cardiac arrest [Recovering/Resolving]
  - Epilepsy [Recovering/Resolving]
  - Clonic convulsion [Recovering/Resolving]
  - Haemodynamic instability [Recovering/Resolving]
  - Cardiogenic shock [Recovering/Resolving]
  - Partial seizures [Recovering/Resolving]
